FAERS Safety Report 6695054-6 (Version None)
Quarter: 2010Q2

REPORT INFORMATION
  Report Type: 
  Country: None (occurrence: None)
  Receive Date: 20100423
  Receipt Date: 20100414
  Transmission Date: 20101027
  Serious: Yes (Other)
  Sender: FDA-Public Use
  Company Number: PHHY2010US24134

PATIENT
  Sex: Male

DRUGS (8)
  1. TRILEPTAL [Suspect]
     Dosage: 300 MG, UNK
  2. OXCARBAZEPINE [Suspect]
  3. TRAZODONE HCL [Concomitant]
  4. VALIUM [Concomitant]
  5. TRIAMCINOLONE [Concomitant]
  6. MIACALCIN [Concomitant]
     Dosage: 5 MG, UNK
  7. LORTAB [Concomitant]
  8. PRILOSEC [Concomitant]

REACTIONS (2)
  - NERVE INJURY [None]
  - PARAESTHESIA [None]
